FAERS Safety Report 14816255 (Version 5)
Quarter: 2018Q4

REPORT INFORMATION
  Report Type: Spontaneous
  Country: DE (occurrence: DE)
  Receive Date: 20180426
  Receipt Date: 20181213
  Transmission Date: 20190204
  Serious: Yes (Death, Hospitalization, Other)
  Sender: FDA-Public Use
  Company Number: DE-PFIZER INC-2018167838

PATIENT
  Age: 78 Year
  Sex: Female
  Weight: 80 kg

DRUGS (4)
  1. CONPIN [Suspect]
     Active Substance: ISOSORBIDE MONONITRATE
     Indication: SUICIDAL IDEATION
     Dosage: 2 G, ONCE/SINGLE ; IN TOTAL
     Route: 048
  2. CIBACEN [Suspect]
     Active Substance: BENAZEPRIL HYDROCHLORIDE
     Indication: SUICIDAL IDEATION
     Dosage: 250 MG, ONCE/SINGLE ; IN TOTAL
     Route: 048
  3. NORVASC [Suspect]
     Active Substance: AMLODIPINE BESYLATE
     Indication: SUICIDAL IDEATION
     Dosage: 430 MG, ONCE/SINGLE ; IN TOTAL
     Route: 048
  4. REMERGIL [Suspect]
     Active Substance: MIRTAZAPINE
     Indication: SUICIDAL IDEATION
     Dosage: 600 MG, ONCE/SINGLE ; IN TOTAL
     Route: 048

REACTIONS (3)
  - Intentional overdose [Fatal]
  - Vasodilatation [Fatal]
  - Cardiac failure [Fatal]
